FAERS Safety Report 6826664-0 (Version None)
Quarter: 2010Q3

REPORT INFORMATION
  Report Type: 
  Country: None (occurrence: None)
  Receive Date: 20100709
  Receipt Date: 20100629
  Transmission Date: 20110219
  Serious: Yes (Death, Hospitalization)
  Sender: FDA-Public Use
  Company Number: JP-PFIZER INC-2010068811

PATIENT
  Age: 57 Year
  Sex: Female
  Weight: 53 kg

DRUGS (7)
  1. SILDENAFIL CITRATE [Suspect]
     Indication: PULMONARY ARTERIAL HYPERTENSION
     Dosage: 60 MG, 3X/DAY
     Dates: start: 20080428
  2. MAINTATE [Concomitant]
     Indication: PULMONARY ARTERIAL HYPERTENSION
     Dosage: UNK
     Dates: start: 20080428
  3. DORNER [Concomitant]
     Indication: PULMONARY ARTERIAL HYPERTENSION
  4. THYRADIN S [Concomitant]
     Dosage: UNK
  5. FERROMIA [Concomitant]
     Dosage: UNK
     Dates: start: 20080428
  6. LANSOPRAZOLE [Concomitant]
     Dosage: UNK
     Dates: start: 20080428
  7. WARFARIN [Concomitant]
     Indication: PULMONARY ARTERIAL HYPERTENSION
     Dosage: UNK

REACTIONS (1)
  - HEPATIC CIRRHOSIS [None]
